FAERS Safety Report 8135086-4 (Version None)
Quarter: 2012Q1

REPORT INFORMATION
  Report Type: 
  Country: None (occurrence: None)
  Receive Date: 20120214
  Receipt Date: 20120209
  Transmission Date: 20120608
  Serious: Yes (Death)
  Sender: FDA-Public Use
  Company Number: IR-SANOFI-AVENTIS-2012SA009066

PATIENT
  Age: 81 Year
  Sex: Female

DRUGS (1)
  1. ENOXAPARIN SODIUM [Suspect]
     Route: 058
     Dates: start: 20111215, end: 20111224

REACTIONS (3)
  - COAGULOPATHY [None]
  - PLATELET COUNT DECREASED [None]
  - HAEMORRHAGE [None]
